FAERS Safety Report 25869140 (Version 2)
Quarter: 2025Q4

REPORT INFORMATION
  Report Type: Spontaneous
  Country: JP (occurrence: JP)
  Receive Date: 20251001
  Receipt Date: 20251120
  Transmission Date: 20260118
  Serious: Yes (Other)
  Sender: AMGEN
  Company Number: JP-AMGEN-JPNSP2025192919

PATIENT
  Age: 8 Decade

DRUGS (3)
  1. BLINCYTO [Suspect]
     Active Substance: BLINATUMOMAB
     Indication: B precursor type acute leukaemia
     Dosage: 9 MICROGRAM, CONTINUING, 24HR DIV, CENTRAL VENOUS (CV)
     Route: 040
     Dates: start: 20250506, end: 2025
  2. BLINCYTO [Suspect]
     Active Substance: BLINATUMOMAB
     Dosage: 28 MICROGRAM, CONTINUING, 24HR DIV, CENTRAL VENOUS (CV)
     Route: 040
     Dates: start: 2025, end: 20250715
  3. INOTUZUMAB OZOGAMICIN [Concomitant]
     Active Substance: INOTUZUMAB OZOGAMICIN

REACTIONS (3)
  - Hepatic function abnormal [Not Recovered/Not Resolved]
  - Minimal residual disease [Unknown]
  - Ill-defined disorder [Unknown]
